FAERS Safety Report 7243833-9 (Version None)
Quarter: 2011Q1

REPORT INFORMATION
  Report Type: 
  Country: None (occurrence: None)
  Receive Date: 20110125
  Receipt Date: 20110121
  Transmission Date: 20110831
  Serious: No
  Sender: FDA-Public Use
  Company Number: US-PFIZER INC-2011015681

PATIENT
  Sex: Female
  Weight: 77 kg

DRUGS (2)
  1. ADVIL PM [Suspect]
     Indication: TOOTHACHE
     Dosage: 800 MG, DAILY
     Route: 048
     Dates: start: 20110119
  2. LEVOTHYROXINE [Concomitant]
     Indication: HYPERTHYROIDISM
     Dosage: 100 MG, UNK
     Route: 048

REACTIONS (2)
  - SOMNOLENCE [None]
  - WRONG DRUG ADMINISTERED [None]
